FAERS Safety Report 8594666-2 (Version None)
Quarter: 2012Q3

REPORT INFORMATION
  Report Type: 
  Country: None (occurrence: None)
  Receive Date: 20120815
  Receipt Date: 20120813
  Transmission Date: 20120928
  Serious: No
  Sender: FDA-Public Use
  Company Number: US-PFIZER INC-2012189112

PATIENT
  Age: 62 Year
  Sex: Female
  Weight: 55.329 kg

DRUGS (11)
  1. ZETIA [Concomitant]
     Indication: BLOOD CHOLESTEROL INCREASED
     Dosage: 10MG THREE TABLETS DAILY
  2. MORPHINE [Concomitant]
     Dosage: 30 MG, 6X/DAY
  3. OMEPRAZOLE [Concomitant]
     Dosage: 20 MG, DAILY
  4. FENOFIBRATE [Concomitant]
     Indication: BLOOD CHOLESTEROL INCREASED
     Dosage: 160 MG, DAILY
  5. CHANTIX [Suspect]
     Indication: SMOKING CESSATION THERAPY
     Dosage: 0.5 MG, DAILY
     Dates: start: 20120503, end: 20120501
  6. LORTAB [Concomitant]
     Dosage: 10/500MG AS NEEDED FOUR TIMES DAY
  7. SIMVASTATIN [Concomitant]
     Indication: BLOOD CHOLESTEROL INCREASED
     Dosage: 40 MG, DAILY
  8. VALIUM [Concomitant]
     Indication: STRESS
     Dosage: ONE AND HALF TABLET DAILY
  9. GABAPENTIN [Concomitant]
     Dosage: 300 MG, DAILY (AT BEDTIME)
  10. CHANTIX [Suspect]
     Dosage: UNK
     Dates: start: 20120501, end: 20120101
  11. CHANTIX [Suspect]
     Dosage: 1 MG, 2X/DAY
     Dates: start: 20120101, end: 20120701

REACTIONS (3)
  - DRUG INEFFECTIVE [None]
  - VOMITING [None]
  - MALAISE [None]
